FAERS Safety Report 7092612-4 (Version None)
Quarter: 2010Q4

REPORT INFORMATION
  Report Type: 
  Country: None (occurrence: None)
  Receive Date: 20101110
  Receipt Date: 20101102
  Transmission Date: 20110411
  Serious: Yes (Other)
  Sender: FDA-Public Use
  Company Number: US-US-EMD SERONO, INC.-230218K08USA

PATIENT
  Sex: Female
  Weight: 113 kg

DRUGS (8)
  1. REBIF [Suspect]
     Indication: MULTIPLE SCLEROSIS
     Route: 058
     Dates: start: 20080409
  2. VYTORIN [Concomitant]
     Indication: BLOOD CHOLESTEROL INCREASED
     Route: 065
     Dates: start: 20050101
  3. HYZAAR [Concomitant]
     Indication: HYPERTENSION
     Route: 065
  4. CARBATROL [Concomitant]
     Indication: TRIGEMINAL NEURALGIA
     Route: 065
  5. ZETIA [Concomitant]
     Indication: BLOOD CHOLESTEROL INCREASED
  6. DIOVAN [Concomitant]
     Indication: HYPERTENSION
     Dates: start: 20050101
  7. TEGRETOL [Concomitant]
     Indication: TRIGEMINAL NEURALGIA
  8. BACLOFEN [Concomitant]

REACTIONS (9)
  - ANGER [None]
  - CORONARY ARTERY DISEASE [None]
  - FATIGUE [None]
  - GAIT DISTURBANCE [None]
  - INJECTION SITE ERYTHEMA [None]
  - MEMORY IMPAIRMENT [None]
  - MUSCLE TIGHTNESS [None]
  - MUSCULOSKELETAL DISORDER [None]
  - PANIC ATTACK [None]
